FAERS Safety Report 14573123 (Version 1)
Quarter: 2018Q1

REPORT INFORMATION
  Report Type: Spontaneous
  Country: US (occurrence: US)
  Receive Date: 20180223
  Receipt Date: 20180223
  Transmission Date: 20180509
  Serious: Yes (Other)
  Sender: FDA-Public Use
  Company Number: None

PATIENT
  Sex: Female
  Weight: 72 kg

DRUGS (8)
  1. NALTREXONE [Concomitant]
     Active Substance: NALTREXONE
  2. FISH OIL [Concomitant]
     Active Substance: FISH OIL
  3. FOLATE [Concomitant]
     Active Substance: FOLATE SODIUM
  4. PANTAPRAZOLE [Suspect]
     Active Substance: PANTOPRAZOLE SODIUM
     Indication: DYSPEPSIA
     Dosage: ?          QUANTITY:1 TABLET(S);?
     Route: 048
     Dates: start: 20180126, end: 20180219
  5. URSODIOL. [Concomitant]
     Active Substance: URSODIOL
  6. VITAMIN D [Concomitant]
     Active Substance: CHOLECALCIFEROL
  7. STRESS B COMPLEX [Concomitant]
  8. BABY ASPIRIN [Concomitant]
     Active Substance: ASPIRIN

REACTIONS (3)
  - Therapy cessation [None]
  - Insomnia [None]
  - Panic attack [None]

NARRATIVE: CASE EVENT DATE: 20180212
